FAERS Safety Report 13153533 (Version 1)
Quarter: 2017Q1

REPORT INFORMATION
  Report Type: Spontaneous
  Country: US (occurrence: US)
  Receive Date: 20170121
  Receipt Date: 20170121
  Transmission Date: 20170428
  Serious: No
  Sender: FDA-Public Use
  Company Number: None

PATIENT
  Age: 12 Year
  Sex: Male
  Weight: 45.45 kg

DRUGS (1)
  1. AZITROMYCIN 250 MG TABLET [Suspect]
     Active Substance: AZITHROMYCIN
     Indication: PHARYNGITIS STREPTOCOCCAL
     Dosage: ?          QUANTITY:1 TABLET(S);?
     Route: 048
     Dates: start: 20170114, end: 20170118

REACTIONS (8)
  - Dizziness [None]
  - Tinnitus [None]
  - Pruritus [None]
  - Nausea [None]
  - Diarrhoea [None]
  - Feeling abnormal [None]
  - Headache [None]
  - Abdominal pain upper [None]

NARRATIVE: CASE EVENT DATE: 20170116
